FAERS Safety Report 21398589 (Version 2)
Quarter: 2022Q4

REPORT INFORMATION
  Report Type: Report from Study
  Country: CA (occurrence: CA)
  Receive Date: 20220930
  Receipt Date: 20221102
  Transmission Date: 20230112
  Serious: Yes (Death)
  Sender: FDA-Public Use
  Company Number: CA-ABBVIE-22K-028-4443284-00

PATIENT
  Sex: Female

DRUGS (1)
  1. VENCLEXTA [Suspect]
     Active Substance: VENETOCLAX
     Indication: Acute myeloid leukaemia
     Route: 048
     Dates: start: 20211122, end: 20220614

REACTIONS (4)
  - Acute myeloid leukaemia recurrent [Fatal]
  - Haemoglobin decreased [Unknown]
  - Abdominal pain [Unknown]
  - Acute myeloid leukaemia refractory [Fatal]

NARRATIVE: CASE EVENT DATE: 20220101
